FAERS Safety Report 19894391 (Version 1)
Quarter: 2021Q3

REPORT INFORMATION
  Report Type: Spontaneous
  Country: US (occurrence: US)
  Receive Date: 20210929
  Receipt Date: 20210929
  Transmission Date: 20211014
  Serious: Yes (Other)
  Sender: FDA-Public Use
  Company Number: None

PATIENT
  Age: 46 Year
  Sex: Female
  Weight: 72 kg

DRUGS (5)
  1. VITAMIN B?COMPLEX [Concomitant]
     Active Substance: DEXPANTHENOL\NIACINAMIDE\PYRIDOXINE HYDROCHLORIDE\RIBOFLAVIN 5^-PHOSPHATE SODIUM\THIAMINE HYDROCHLORIDE
  2. VITAMIN C [Concomitant]
     Active Substance: ASCORBIC ACID
  3. METHYLPREDNISOLONE 4MG [Suspect]
     Active Substance: METHYLPREDNISOLONE
     Indication: PAIN
     Dosage: ?          QUANTITY:1 TABLET(S);OTHER FREQUENCY:6 DAY DOSE PACK;?
     Route: 048
     Dates: start: 20210903
  4. METHYLPREDNISOLONE 4MG [Suspect]
     Active Substance: METHYLPREDNISOLONE
     Indication: TENDON RUPTURE
     Dosage: ?          QUANTITY:1 TABLET(S);OTHER FREQUENCY:6 DAY DOSE PACK;?
     Route: 048
     Dates: start: 20210903
  5. VIT D [Concomitant]
     Active Substance: VITAMIN D NOS

REACTIONS (4)
  - Visual impairment [None]
  - Intraocular pressure increased [None]
  - Vision blurred [None]
  - Headache [None]

NARRATIVE: CASE EVENT DATE: 20210923
